FAERS Safety Report 9920485 (Version 1)
Quarter: 2014Q1

REPORT INFORMATION
  Report Type: Spontaneous
  Country: None (occurrence: US)
  Receive Date: 20140224
  Receipt Date: 20140224
  Transmission Date: 20141002
  Serious: No
  Sender: FDA-Public Use
  Company Number: US-NOVEN-13US008198

PATIENT
  Sex: Female

DRUGS (1)
  1. MINIVELLE [Suspect]
     Indication: HOT FLUSH
     Dosage: 0.0375 MG/DAY, UNK
     Route: 062
     Dates: start: 201310, end: 20131108

REACTIONS (6)
  - Feeling abnormal [Recovering/Resolving]
  - Depressed mood [Recovering/Resolving]
  - Mood swings [Recovering/Resolving]
  - Drug effect increased [Recovered/Resolved]
  - Drug prescribing error [Recovered/Resolved]
  - Wrong technique in drug usage process [Recovered/Resolved]
